FAERS Safety Report 9538071 (Version 4)
Quarter: 2013Q4

REPORT INFORMATION
  Report Type: Spontaneous
  Country: GB (occurrence: GB)
  Receive Date: 20130920
  Receipt Date: 20131231
  Transmission Date: 20140711
  Serious: Yes (Death, Hospitalization, Other)
  Sender: FDA-Public Use
  Company Number: GB-AMGEN-GBRSP2013065983

PATIENT
  Age: 75 Year
  Sex: Female
  Weight: 56 kg

DRUGS (8)
  1. ENBREL [Suspect]
     Indication: RHEUMATOID ARTHRITIS
     Dosage: 50 MG, WEEKLY
     Route: 058
     Dates: start: 20060719, end: 200711
  2. LANSOPRAZOLE [Concomitant]
     Indication: PROPHYLAXIS
     Dosage: 30 MG, 1X/DAY MORNING
     Route: 048
     Dates: start: 2006
  3. STRONTIUM [Concomitant]
     Indication: RHEUMATOID ARTHRITIS
     Dosage: 2 MG, 1X/DAY NIGHT
     Route: 048
     Dates: start: 200911, end: 20130918
  4. STRONTIUM [Concomitant]
     Indication: OSTEOPOROSIS
  5. HYDROXYCHLOROQUINE [Concomitant]
     Indication: RHEUMATOID ARTHRITIS
     Dosage: 200 MG, 1X/DAY
     Route: 048
     Dates: start: 200811, end: 20120918
  6. CELEBREX [Concomitant]
     Indication: RHEUMATOID ARTHRITIS
     Dosage: 200 MG, 2X/DAY
     Route: 048
     Dates: start: 200908, end: 20130918
  7. LEFLUNOMIDE [Concomitant]
     Dosage: UNK
     Dates: start: 200210
  8. PREDNISONE ACETATE [Concomitant]
     Dosage: UNK
     Dates: start: 2000

REACTIONS (6)
  - Glioblastoma [Fatal]
  - Convulsion [Fatal]
  - Aphasia [Fatal]
  - Fluid retention [Unknown]
  - Arthralgia [Unknown]
  - Interstitial lung disease [Unknown]
